FAERS Safety Report 11950450 (Version 1)
Quarter: 2016Q1

REPORT INFORMATION
  Report Type: Spontaneous
  Country: US (occurrence: None)
  Receive Date: 20160121
  Receipt Date: 20160121
  Transmission Date: 20160526
  Serious: Yes (Disabling)
  Sender: FDA-Public Use
  Company Number: None

PATIENT
  Age: 80 Year
  Sex: Female
  Weight: 90.72 kg

DRUGS (7)
  1. GABAPENTIN 100MG AUROBIND [Suspect]
     Active Substance: GABAPENTIN
     Indication: ARTHRALGIA
     Dosage: 100MG X3 D INCREASE TAKEN BY MOUTH
     Dates: start: 20151117, end: 20160106
  2. ATENOLOL. [Concomitant]
     Active Substance: ATENOLOL
  3. KCL [Concomitant]
     Active Substance: POTASSIUM CHLORIDE
  4. VITAMIN [Concomitant]
     Active Substance: VITAMINS
  5. CRESTOR [Concomitant]
     Active Substance: ROSUVASTATIN CALCIUM
  6. LASIX [Concomitant]
     Active Substance: FUROSEMIDE
  7. COUMADIN [Concomitant]
     Active Substance: WARFARIN SODIUM

REACTIONS (2)
  - Arthralgia [None]
  - Oedema peripheral [None]

NARRATIVE: CASE EVENT DATE: 20160104
